FAERS Safety Report 8058455-X (Version None)
Quarter: 2012Q1

REPORT INFORMATION
  Report Type: 
  Country: None (occurrence: None)
  Receive Date: 20120120
  Receipt Date: 20120112
  Transmission Date: 20120608
  Serious: Yes (Hospitalization, Congenital Anomaly, Other)
  Sender: FDA-Public Use
  Company Number: US-PFIZER INC-2011158463

PATIENT
  Sex: Male
  Weight: 2.5 kg

DRUGS (5)
  1. EFFEXOR [Suspect]
     Dosage: UNK
     Route: 064
  2. AMOXICILLIN AND CLAVULANATE POTASSIUM [Concomitant]
     Dosage: UNK
     Route: 064
     Dates: start: 20100322
  3. AUGMENTIN '125' [Concomitant]
     Dosage: UNK
     Route: 064
     Dates: start: 20100322
  4. ACETAMINOPHEN [Concomitant]
     Indication: SINUS HEADACHE
     Dosage: UNK
     Route: 064
     Dates: start: 20100322
  5. PENICILLIN G [Concomitant]
     Indication: BACTERIAL TEST POSITIVE
     Dosage: UNK
     Route: 064

REACTIONS (42)
  - PLAGIOCEPHALY [None]
  - PULMONARY OEDEMA [None]
  - TRICUSPID VALVE INCOMPETENCE [None]
  - DEVELOPMENTAL DELAY [None]
  - SPEECH DISORDER DEVELOPMENTAL [None]
  - DOUBLE OUTLET RIGHT VENTRICLE [None]
  - HEPATOMEGALY [None]
  - ATRIAL SEPTAL DEFECT [None]
  - CONGENITAL PULMONARY HYPERTENSION [None]
  - MATERNAL DRUGS AFFECTING FOETUS [None]
  - TRANSPOSITION OF THE GREAT VESSELS [None]
  - FEEDING DISORDER NEONATAL [None]
  - GENITAL RASH [None]
  - CONGENITAL CORONARY ARTERY MALFORMATION [None]
  - PERSISTENT LEFT SUPERIOR VENA CAVA [None]
  - MUSCULAR WEAKNESS [None]
  - PATENT DUCTUS ARTERIOSUS [None]
  - NEONATAL RESPIRATORY DISTRESS SYNDROME [None]
  - PREMATURE BABY [None]
  - AORTIC VALVE STENOSIS [None]
  - GROSS MOTOR DELAY [None]
  - HYPOTONIA [None]
  - ABNORMAL LOSS OF WEIGHT [None]
  - CARDIAC FAILURE CONGESTIVE [None]
  - INFANTILE APNOEIC ATTACK [None]
  - SEPSIS NEONATAL [None]
  - CARDIOMEGALY [None]
  - FINE MOTOR DELAY [None]
  - MATERNAL EXPOSURE TIMING UNSPECIFIED [None]
  - FALLOT'S TETRALOGY [None]
  - JAUNDICE NEONATAL [None]
  - ANAEMIA NEONATAL [None]
  - VENTRICULAR SEPTAL DEFECT [None]
  - PULMONARY ARTERY STENOSIS CONGENITAL [None]
  - CHYLOTHORAX [None]
  - PHIMOSIS [None]
  - FAILURE TO THRIVE [None]
  - TORTICOLLIS [None]
  - NODAL ARRHYTHMIA [None]
  - CAESAREAN SECTION [None]
  - METABOLIC ACIDOSIS [None]
  - DYSPHAGIA [None]
